FAERS Safety Report 25895768 (Version 1)
Quarter: 2025Q4

REPORT INFORMATION
  Report Type: Spontaneous
  Country: GB (occurrence: GB)
  Receive Date: 20251008
  Receipt Date: 20251008
  Transmission Date: 20260118
  Serious: Yes (Other)
  Sender: TEVA
  Company Number: GB-MHRA-TPP13584016C298002YC1759426327507

PATIENT
  Age: 32 Year
  Sex: Female
  Weight: 59 kg

DRUGS (5)
  1. OFLOXACIN [Suspect]
     Active Substance: OFLOXACIN
     Indication: Ill-defined disorder
     Route: 065
     Dates: start: 20251002
  2. OMEPRAZOLE [Concomitant]
     Active Substance: OMEPRAZOLE
     Indication: Ill-defined disorder
     Dosage: FOR 4 WEEKS THEN AS NEEDED
     Dates: start: 20240621
  3. MOMETASONE [Concomitant]
     Active Substance: MOMETASONE
     Indication: Ill-defined disorder
     Dosage: TWO DAILY REDUCE TO ONE SRPAY AFTER 1-2 ...
     Dates: start: 20220922
  4. TRANEXAMIC ACID [Concomitant]
     Active Substance: TRANEXAMIC ACID
     Indication: Ill-defined disorder
     Dosage: TIME INTERVAL: 0.33333333 DAYS: FOR UP TO 4 DAYS...
     Route: 065
     Dates: start: 20250619
  5. SERTRALINE [Concomitant]
     Active Substance: SERTRALINE HYDROCHLORIDE
     Indication: Ill-defined disorder
     Dosage: FOR 2 WEEKS THEN INCREASE IF TO...
     Dates: start: 20230209

REACTIONS (3)
  - Tendonitis [Unknown]
  - Taste disorder [Unknown]
  - Anosmia [Unknown]

NARRATIVE: CASE EVENT DATE: 20251002
